FAERS Safety Report 17293122 (Version 1)
Quarter: 2020Q1

REPORT INFORMATION
  Report Type: Spontaneous
  Country: US (occurrence: US)
  Receive Date: 20200118
  Receipt Date: 20200118
  Transmission Date: 20200409
  Serious: Yes (Other)
  Sender: FDA-Public Use
  Company Number: None

PATIENT
  Age: 45 Year
  Sex: Female
  Weight: 72 kg

DRUGS (1)
  1. SM HYDROQUINONE/KOJIC/NIACINAMIDE/VITAMIN C12%/6%/2%/1% [Suspect]
     Active Substance: ASCORBIC ACID\HYDROQUINONE\KOJIC ACID\NIACINAMIDE
     Indication: SKIN HYPERPIGMENTATION
     Route: 062
     Dates: start: 20191220, end: 20191222

REACTIONS (5)
  - Skin tightness [None]
  - Migraine [None]
  - Skin burning sensation [None]
  - Pain [None]
  - Erythema [None]

NARRATIVE: CASE EVENT DATE: 20191221
